FAERS Safety Report 4513466-3 (Version None)
Quarter: 2004Q4

REPORT INFORMATION
  Report Type: 
  Country: None (occurrence: None)
  Receive Date: 20041130
  Receipt Date: 20041028
  Transmission Date: 20050328
  Serious: Yes (Hospitalization)
  Sender: FDA-Public Use
  Company Number: US-BRISTOL-MYERS SQUIBB COMPANY-12752747

PATIENT
  Sex: Male

DRUGS (1)
  1. ERBITUX [Suspect]
     Dosage: 1ST INFUSION, REC'D 25 CC
     Route: 042
     Dates: start: 20041001, end: 20041001

REACTIONS (2)
  - HYPOTENSION [None]
  - OBSTRUCTIVE AIRWAYS DISORDER [None]
